FAERS Safety Report 5801568-0 (Version None)
Quarter: 2008Q3

REPORT INFORMATION
  Report Type: 
  Country: None (occurrence: None)
  Receive Date: 20080703
  Receipt Date: 20080703
  Transmission Date: 20090109
  Serious: Yes (Life-Threatening, Other)
  Sender: FDA-Public Use
  Company Number: None

PATIENT
  Age: 46 Year
  Sex: Female
  Weight: 79.3795 kg

DRUGS (2)
  1. PREDNISONE TAB [Suspect]
     Indication: DRUG HYPERSENSITIVITY
     Dosage: 84 ONCE DAILY PO
     Route: 048
     Dates: start: 20080407, end: 20080414
  2. PREDNISONE TAB [Suspect]
     Indication: SWELLING
     Dosage: 84 ONCE DAILY PO
     Route: 048
     Dates: start: 20080407, end: 20080414

REACTIONS (4)
  - EYE DISORDER [None]
  - ILL-DEFINED DISORDER [None]
  - OVERDOSE [None]
  - THYROID DISORDER [None]
